FAERS Safety Report 5261911-0 (Version None)
Quarter: 2007Q1

REPORT INFORMATION
  Report Type: 
  Country: None (occurrence: None)
  Receive Date: 20070310
  Receipt Date: 20070228
  Transmission Date: 20070707
  Serious: Yes (Hospitalization, Disabling)
  Sender: FDA-Public Use
  Company Number: 2006UW26378

PATIENT
  Sex: Female
  Weight: 163.6 kg

DRUGS (4)
  1. SEROQUEL [Suspect]
     Indication: SCHIZOAFFECTIVE DISORDER
     Route: 048
     Dates: start: 19970101
  2. NAVANE [Concomitant]
     Dates: start: 19950301
  3. RISPERDAL [Concomitant]
     Dates: start: 19950801
  4. REZULIN [Concomitant]
     Dosage: FILED LAWSUIT IN 1998 / SETTLED 2005.

REACTIONS (4)
  - ANGIOPATHY [None]
  - DIABETES MELLITUS [None]
  - OBESITY [None]
  - SUICIDAL IDEATION [None]
